FAERS Safety Report 6574275-7 (Version None)
Quarter: 2010Q1

REPORT INFORMATION
  Report Type: 
  Country: None (occurrence: None)
  Receive Date: 20100201
  Receipt Date: 20100108
  Transmission Date: 20100710
  Serious: Yes (Life-Threatening, Hospitalization, Other)
  Sender: FDA-Public Use
  Company Number: ADE2008-0132

PATIENT
  Age: 39 Year
  Sex: Male

DRUGS (4)
  1. AMLODIPINE [Suspect]
     Dosage: 280MG X1 ORAL
     Route: 048
  2. METFORMIN HCL [Suspect]
     Dosage: 6500MG X1 ORAL
     Route: 048
  3. ASPIRIN [Suspect]
     Dosage: 975MG X1 ORAL
     Route: 048
  4. DOXAZOSIN MESYLATE [Suspect]
     Dosage: 112MG X1 ORAL
     Route: 048

REACTIONS (4)
  - BLOOD PRESSURE DECREASED [None]
  - CARDIOTOXICITY [None]
  - HAEMODIALYSIS [None]
  - INCORRECT DOSE ADMINISTERED [None]
